FAERS Safety Report 9320830 (Version 1)
Quarter: 2013Q2

REPORT INFORMATION
  Report Type: Spontaneous
  Country: GB (occurrence: None)
  Receive Date: 20130528
  Receipt Date: 20130528
  Transmission Date: 20140414
  Serious: Yes (Disabling)
  Sender: FDA-Public Use
  Company Number: 1716812

PATIENT
  Age: 14 Year
  Sex: Female

DRUGS (7)
  1. CYTARABINE [Suspect]
     Indication: ACUTE LYMPHOCYTIC LEUKAEMIA
     Dosage: (NOT OTHERWISE SPECIFIED)
     Route: 042
  2. METHOTREXATE [Suspect]
     Indication: ACUTE LYMPHOCYTIC LEUKAEMIA
     Route: 037
  3. CYCLOPHOSPHAMIDE [Suspect]
     Indication: ACUTE LYMPHOCYTIC LEUKAEMIA
     Dosage: (NOT OTHERWISE SPECIFIED)
     Route: 042
  4. (VINCRISTINE) [Concomitant]
  5. (DEXAMETHASONE) [Concomitant]
  6. (ASPARAGINASE) [Concomitant]
  7. (DANUNORUBICIN) [Concomitant]

REACTIONS (4)
  - Monoparesis [None]
  - Euphoric mood [None]
  - Vision blurred [None]
  - VIIth nerve paralysis [None]
